FAERS Safety Report 17220355 (Version 3)
Quarter: 2020Q1

REPORT INFORMATION
  Report Type: Spontaneous
  Country: AT (occurrence: AT)
  Receive Date: 20191231
  Receipt Date: 20200123
  Transmission Date: 20200409
  Serious: Yes (Life-Threatening, Other)
  Sender: FDA-Public Use
  Company Number: AT-AMGEN-AUTSP2019215267

PATIENT
  Age: 16 Year
  Sex: Female
  Weight: 75 kg

DRUGS (18)
  1. FEXOFENADINE [Concomitant]
     Active Substance: FEXOFENADINE HYDROCHLORIDE
     Dosage: UNK
  2. BACLOFEN. [Concomitant]
     Active Substance: BACLOFEN
     Dosage: 10 MILLIGRAM, QD
  3. ETANERCEPT [Suspect]
     Active Substance: ETANERCEPT
     Indication: PRODUCT USED FOR UNKNOWN INDICATION
     Dosage: UNK
     Route: 065
  4. LEVOTHYROXINE. [Concomitant]
     Active Substance: LEVOTHYROXINE
     Dosage: UNK
  5. HYDROCORTISONE. [Concomitant]
     Active Substance: HYDROCORTISONE
     Dosage: 25 MILLIGRAM, QD
  6. DRONABINOL. [Concomitant]
     Active Substance: DRONABINOL
     Dosage: UNK
  7. PANTOPRAZOLE [Concomitant]
     Active Substance: PANTOPRAZOLE
  8. MYCOPHENOLATE MOFETIL. [Concomitant]
     Active Substance: MYCOPHENOLATE MOFETIL
     Dosage: 500 MILLIGRAM, QD
  9. ALLOPURINOL. [Concomitant]
     Active Substance: ALLOPURINOL
     Dosage: UNK
  10. PANCRELIPASE. [Concomitant]
     Active Substance: PANCRELIPASE
     Dosage: UNK
  11. PROLIA [Suspect]
     Active Substance: DENOSUMAB
     Indication: OSTEOPOROSIS
     Dosage: UNK
     Route: 065
  12. TRAMADOL. [Concomitant]
     Active Substance: TRAMADOL
     Dosage: UNK
  13. PREGABALIN. [Concomitant]
     Active Substance: PREGABALIN
     Dosage: 75 MILLIGRAM, QD
  14. IVABRADINE [Suspect]
     Active Substance: IVABRADINE
     Indication: PRODUCT USED FOR UNKNOWN INDICATION
     Dosage: UNK
     Route: 065
  15. ACETYLSALICYLIC ACID [Concomitant]
     Active Substance: ASPIRIN
  16. VENLAFAXINE [Concomitant]
     Active Substance: VENLAFAXINE HYDROCHLORIDE
     Dosage: UNK
  17. TRAZODONE [Concomitant]
     Active Substance: TRAZODONE HYDROCHLORIDE
     Dosage: UNK
  18. VITAMINE D [Concomitant]
     Active Substance: CHOLECALCIFEROL
     Dosage: UNK

REACTIONS (32)
  - Cardiac arrest [Unknown]
  - Pericardial effusion [Unknown]
  - Ovarian cyst [Unknown]
  - Temporomandibular joint syndrome [Unknown]
  - Joint dislocation [Unknown]
  - Bundle branch block right [Unknown]
  - Cutaneous lupus erythematosus [Unknown]
  - Sialoadenitis [Unknown]
  - Blood triglycerides increased [Unknown]
  - Migraine [Unknown]
  - Drug intolerance [Unknown]
  - Blood creatine phosphokinase increased [Unknown]
  - Depression [Unknown]
  - Hyperlipidaemia [Unknown]
  - Myalgia [Unknown]
  - Hyperhidrosis [Unknown]
  - Atrioventricular block complete [Unknown]
  - Nephrolithiasis [Unknown]
  - Diastolic dysfunction [Unknown]
  - Myoglobin blood increased [Unknown]
  - Anosmia [Unknown]
  - Goitre [Unknown]
  - Cerebral haemangioma [Unknown]
  - Varicella zoster virus infection [Unknown]
  - Menstrual disorder [Unknown]
  - Aspartate aminotransferase increased [Unknown]
  - Serum ferritin decreased [Unknown]
  - Glomerular filtration rate decreased [Unknown]
  - Blood lactic acid increased [Unknown]
  - Brain natriuretic peptide increased [Unknown]
  - Vitamin D deficiency [Unknown]
  - Secondary hypogonadism [Unknown]
